FAERS Safety Report 11274153 (Version 1)
Quarter: 2015Q3

REPORT INFORMATION
  Report Type: Spontaneous
  Country: SE (occurrence: SE)
  Receive Date: 20150715
  Receipt Date: 20150715
  Transmission Date: 20151125
  Serious: Yes (Hospitalization)
  Sender: FDA-Public Use
  Company Number: SE-TEVA-578279ISR

PATIENT
  Age: 83 Year
  Sex: Female

DRUGS (2)
  1. GABAPENTIN 300 MILLIGRAM KAPSLAR [Suspect]
     Active Substance: GABAPENTIN
     Route: 065
  2. DIGOXIN 0.13 MILLIGRAM TABLETTER [Suspect]
     Active Substance: DIGOXIN
     Route: 065

REACTIONS (2)
  - Fatigue [Recovered/Resolved]
  - Toxicity to various agents [Recovered/Resolved]
